FAERS Safety Report 5799595-5 (Version None)
Quarter: 2008Q3

REPORT INFORMATION
  Report Type: 
  Country: None (occurrence: None)
  Receive Date: 20080703
  Receipt Date: 20080623
  Transmission Date: 20090109
  Serious: Yes (Other)
  Sender: FDA-Public Use
  Company Number: PHBS2007JP20126

PATIENT
  Sex: Male
  Weight: 56 kg

DRUGS (9)
  1. ZOMETA [Suspect]
     Indication: MULTIPLE MYELOMA
     Dosage: 4 MG, UNK
     Route: 042
     Dates: start: 20070614, end: 20070614
  2. ZOMETA [Suspect]
     Route: 042
     Dates: start: 20070816, end: 20070816
  3. ZOMETA [Suspect]
     Route: 042
     Dates: start: 20071025, end: 20071025
  4. AREDIA [Suspect]
     Indication: MULTIPLE MYELOMA
     Dosage: 30 MG /DAY
     Route: 042
     Dates: start: 20060201, end: 20070401
  5. DEXAMETHASONE TAB [Concomitant]
     Dosage: 200 MG, UNK
  6. THALIDOMIDE [Concomitant]
  7. ANGIOTENSIN CONVERTING ENZYME BLOCKERS [Concomitant]
     Indication: HYPERTENSION
  8. MELPHALAN [Concomitant]
     Dates: start: 20060201
  9. PREDNISOLONE [Concomitant]
     Dates: start: 20060201

REACTIONS (3)
  - OSTEOMYELITIS [None]
  - TOOTH ABSCESS [None]
  - TOOTH EXTRACTION [None]
